FAERS Safety Report 20810107 (Version 1)
Quarter: 2022Q2

REPORT INFORMATION
  Report Type: Spontaneous
  Country: US (occurrence: US)
  Receive Date: 20220510
  Receipt Date: 20220510
  Transmission Date: 20220721
  Serious: No
  Sender: FDA-Public Use
  Company Number: US-OYSTER POINT PHARMA, INC.-2022OYS00067

PATIENT
  Sex: Female

DRUGS (2)
  1. TYRVAYA [Suspect]
     Active Substance: VARENICLINE TARTRATE
     Indication: Dry eye
     Dosage: 1 SQUIRT, EACH NOSTRIL, 2X/DAY
     Route: 045
  2. SYNTHROID [Concomitant]
     Active Substance: LEVOTHYROXINE SODIUM
     Dosage: 0.88 MG, 1X/DAY

REACTIONS (3)
  - Sneezing [Recovered/Resolved]
  - Product administration error [Recovered/Resolved]
  - Product delivery mechanism issue [Unknown]

NARRATIVE: CASE EVENT DATE: 20220123
